FAERS Safety Report 17431410 (Version 2)
Quarter: 2020Q4

REPORT INFORMATION
  Report Type: Spontaneous
  Country: US (occurrence: US)
  Receive Date: 20200218
  Receipt Date: 20201015
  Transmission Date: 20210113
  Serious: Yes (Disabling)
  Sender: FDA-Public Use
  Company Number: US-TEVA-2020-US-1186980

PATIENT
  Age: 51 Year
  Sex: Female

DRUGS (3)
  1. DOCETAXEL HOSPIRA [Suspect]
     Active Substance: DOCETAXEL
     Indication: ENDOMETRIAL STROMAL SARCOMA
     Dosage: NUMBER OF CYCLES: 05 (EVERY THREE WEEKS)
     Route: 065
     Dates: start: 20180528, end: 20180827
  2. MULTIVITAMINS [Concomitant]
     Active Substance: VITAMINS
  3. GEMZAR [Concomitant]
     Active Substance: GEMCITABINE HYDROCHLORIDE

REACTIONS (4)
  - Hair colour changes [Not Recovered/Not Resolved]
  - Madarosis [Not Recovered/Not Resolved]
  - Alopecia [Not Recovered/Not Resolved]
  - Hair texture abnormal [Not Recovered/Not Resolved]

NARRATIVE: CASE EVENT DATE: 201807
